FAERS Safety Report 5287054-8 (Version None)
Quarter: 2007Q1

REPORT INFORMATION
  Report Type: 
  Country: None (occurrence: None)
  Receive Date: 20070330
  Receipt Date: 20070323
  Transmission Date: 20070707
  Serious: Yes (Other)
  Sender: FDA-Public Use
  Company Number: 238381

PATIENT
  Age: 83 Year
  Sex: Female

DRUGS (5)
  1. LUCENTIS [Suspect]
     Indication: MACULAR DEGENERATION
     Dosage: INTRAVITREAL
     Dates: start: 20070214
  2. TOPROL-XL [Concomitant]
  3. COUMADIN [Concomitant]
  4. HYZAAR [Concomitant]
  5. FLUORESCEIN (FLUORESCEIN) [Concomitant]

REACTIONS (4)
  - LIP PAIN [None]
  - LIP SWELLING [None]
  - RASH [None]
  - SECRETION DISCHARGE [None]
